FAERS Safety Report 6722345-2 (Version None)
Quarter: 2010Q2

REPORT INFORMATION
  Report Type: 
  Country: None (occurrence: None)
  Receive Date: 20100512
  Receipt Date: 20100420
  Transmission Date: 20101027
  Serious: Yes (Other)
  Sender: FDA-Public Use
  Company Number: GB-ROCHE-701660

PATIENT

DRUGS (2)
  1. PEGINTERFERON ALFA-2A [Suspect]
     Route: 065
  2. RIBAVIRIN [Suspect]
     Route: 065

REACTIONS (13)
  - DEPRESSION [None]
  - DYSPNOEA [None]
  - INFLUENZA LIKE ILLNESS [None]
  - LETHARGY [None]
  - MEMORY IMPAIRMENT [None]
  - MOOD ALTERED [None]
  - MOOD SWINGS [None]
  - PRODUCTIVE COUGH [None]
  - RASH [None]
  - SENSORY DISTURBANCE [None]
  - SLEEP DISORDER [None]
  - SUICIDAL IDEATION [None]
  - VISUAL ACUITY REDUCED [None]
